FAERS Safety Report 9267729 (Version 2)
Quarter: 2013Q4

REPORT INFORMATION
  Report Type: Spontaneous
  Country: US (occurrence: US)
  Receive Date: 20130502
  Receipt Date: 20131219
  Transmission Date: 20140711
  Serious: Yes (Hospitalization, Other)
  Sender: FDA-Public Use
  Company Number: US-ELI_LILLY_AND_COMPANY-US201304007731

PATIENT
  Sex: Male
  Weight: 131.97 kg

DRUGS (12)
  1. ADCIRCA [Suspect]
     Indication: PULMONARY HYPERTENSION
     Dosage: 40 MG, QD
     Route: 048
     Dates: start: 20120828
  2. HYDRALAZINE [Concomitant]
  3. LOSARTAN [Concomitant]
  4. POTASSIUM CHLORIDE [Concomitant]
  5. CLONAZEPAM [Concomitant]
  6. FUROSEMIDE [Concomitant]
  7. GLYBURIDE [Concomitant]
  8. VITAMIN D                          /00107901/ [Concomitant]
  9. MIRTAZAPINE [Concomitant]
  10. VERAPAMIL [Concomitant]
  11. SITAGLIPTIN [Concomitant]
  12. DOCUSATE SODIUM [Concomitant]

REACTIONS (2)
  - Neuropathic arthropathy [Recovering/Resolving]
  - Foot fracture [Recovering/Resolving]
